FAERS Safety Report 17213401 (Version 1)
Quarter: 2019Q4

REPORT INFORMATION
  Report Type: Spontaneous
  Country: IT (occurrence: IT)
  Receive Date: 20191230
  Receipt Date: 20191230
  Transmission Date: 20200122
  Serious: Yes (Hospitalization, Other)
  Sender: FDA-Public Use
  Company Number: IT-PFIZER INC-2019555930

PATIENT
  Age: 56 Year
  Sex: Female

DRUGS (4)
  1. PANTORC [Suspect]
     Active Substance: PANTOPRAZOLE SODIUM
     Indication: INTENTIONAL SELF-INJURY
     Dosage: UNK
     Route: 048
     Dates: start: 20191201, end: 20191201
  2. LAROXYL [Suspect]
     Active Substance: AMITRIPTYLINE HYDROCHLORIDE
     Indication: INTENTIONAL SELF-INJURY
     Dosage: 40 MILLILITER
     Route: 048
     Dates: start: 20181201, end: 20181201
  3. TARDYFER [Suspect]
     Active Substance: FERROUS SULFATE
     Indication: INTENTIONAL SELF-INJURY
     Dosage: 5 DF, UNK
     Route: 048
     Dates: start: 20191201, end: 20191201
  4. RIVOTRIL [Suspect]
     Active Substance: CLONAZEPAM
     Indication: INTENTIONAL SELF-INJURY
     Dosage: 40 ML, SINGLE (IN A SINGLE INTAKE)
     Route: 048
     Dates: start: 20191201, end: 20191201

REACTIONS (5)
  - Coma [Recovered/Resolved]
  - Intentional self-injury [Unknown]
  - Intentional overdose [Unknown]
  - Product use in unapproved indication [Unknown]
  - Off label use [Unknown]

NARRATIVE: CASE EVENT DATE: 20191201
